FAERS Safety Report 6659683-8 (Version None)
Quarter: 2010Q1

REPORT INFORMATION
  Report Type: 
  Country: None (occurrence: None)
  Receive Date: 20100330
  Receipt Date: 20100318
  Transmission Date: 20100710
  Serious: Yes (Other)
  Sender: FDA-Public Use
  Company Number: JP-PFIZER INC-2010020834

PATIENT
  Sex: Female

DRUGS (2)
  1. ZOLOFT [Suspect]
     Indication: SUICIDAL IDEATION
     Dosage: 25 TO 50 MG/DAY
     Route: 048
     Dates: end: 20100201
  2. PAROXETINE HYDROCHLORIDE [Concomitant]

REACTIONS (12)
  - ALOPECIA [None]
  - ANXIETY [None]
  - CHILLS [None]
  - HOT FLUSH [None]
  - HYPERCHOLESTEROLAEMIA [None]
  - IRRITABILITY [None]
  - MUSCULOSKELETAL STIFFNESS [None]
  - MUTISM [None]
  - MYALGIA [None]
  - PALPITATIONS [None]
  - PERIPHERAL COLDNESS [None]
  - TACHYCARDIA [None]
